FAERS Safety Report 9372578 (Version 1)
Quarter: 2013Q2

REPORT INFORMATION
  Report Type: Spontaneous
  Country: FR (occurrence: FR)
  Receive Date: 20130627
  Receipt Date: 20130627
  Transmission Date: 20140414
  Serious: Yes (Hospitalization, Other)
  Sender: FDA-Public Use
  Company Number: FR-PFIZER INC-2013188289

PATIENT
  Age: 81 Year
  Sex: Male

DRUGS (5)
  1. TAHOR [Suspect]
     Indication: HYPERCHOLESTEROLAEMIA
     Dosage: UNK
     Route: 048
     Dates: end: 20130508
  2. PYOSTACINE [Suspect]
     Indication: ERYSIPELAS
     Dosage: UNK
     Route: 048
     Dates: start: 20130501, end: 20130515
  3. BISOPROLOL [Concomitant]
     Dosage: UNK
  4. PREVISCAN [Concomitant]
     Dosage: UNK
  5. AMOXICILLIN [Concomitant]
     Indication: ERYSIPELAS
     Dosage: UNK
     Dates: start: 201304

REACTIONS (4)
  - Thrombocytopenia [Unknown]
  - International normalised ratio increased [Unknown]
  - Haemoglobin decreased [Unknown]
  - Melaena [Unknown]
